FAERS Safety Report 4844401-6 (Version None)
Quarter: 2005Q4

REPORT INFORMATION
  Report Type: 
  Country: None (occurrence: None)
  Receive Date: 20051202
  Receipt Date: 20050929
  Transmission Date: 20060501
  Serious: Yes (Hospitalization, Other)
  Sender: FDA-Public Use
  Company Number: US-MERCK-0510USA00493

PATIENT
  Age: 44 Year
  Sex: Male
  Weight: 90 kg

DRUGS (1)
  1. VIOXX [Suspect]
     Indication: ARTHRALGIA
     Route: 048
     Dates: start: 20000101, end: 20020101

REACTIONS (3)
  - ARTHROPATHY [None]
  - CHEST PAIN [None]
  - MYOCARDIAL INFARCTION [None]
